FAERS Safety Report 5291000-0 (Version None)
Quarter: 2007Q2

REPORT INFORMATION
  Report Type: 
  Country: None (occurrence: None)
  Receive Date: 20070409
  Receipt Date: 20070329
  Transmission Date: 20071010
  Serious: Yes (Other)
  Sender: FDA-Public Use
  Company Number: PT-ROCHE-490346

PATIENT
  Age: 63 Year
  Sex: Female
  Weight: 59 kg

DRUGS (2)
  1. BONVIVA [Suspect]
     Indication: DRUG USE FOR UNKNOWN INDICATION
     Route: 065
     Dates: start: 20070115
  2. FOSAMAX [Concomitant]
     Indication: OSTEOPOROSIS
     Dosage: TAKEN WEEKLY
     Route: 048
     Dates: start: 20060606, end: 20061206

REACTIONS (1)
  - JOINT SWELLING [None]
